FAERS Safety Report 4759996-0 (Version None)
Quarter: 2005Q3

REPORT INFORMATION
  Report Type: 
  Country: None (occurrence: None)
  Receive Date: 20050902
  Receipt Date: 20050719
  Transmission Date: 20060218
  Serious: Yes (Hospitalization, Other)
  Sender: FDA-Public Use
  Company Number: GBWYE843619JUL05

PATIENT
  Sex: Male

DRUGS (4)
  1. ENBREL [Suspect]
     Indication: DRUG USE FOR UNKNOWN INDICATION
     Dosage: UNKNOWN
     Route: 058
     Dates: start: 20041004, end: 20050601
  2. METHOTREXATE [Concomitant]
     Dates: start: 20030301
  3. MELOXICAM [Concomitant]
  4. SULFASALAZINE [Concomitant]
     Dates: start: 20020501

REACTIONS (3)
  - ASTHMA [None]
  - CONDITION AGGRAVATED [None]
  - EOSINOPHIL COUNT INCREASED [None]
